FAERS Safety Report 16851433 (Version 8)
Quarter: 2020Q2

REPORT INFORMATION
  Report Type: Spontaneous
  Country: US (occurrence: US)
  Receive Date: 20190925
  Receipt Date: 20200609
  Transmission Date: 20200713
  Serious: Yes (Hospitalization)
  Sender: FDA-Public Use
  Company Number: US-PFIZER INC-2019412995

PATIENT
  Age: 66 Year
  Sex: Female
  Weight: 86.17 kg

DRUGS (3)
  1. LYRICA [Suspect]
     Active Substance: PREGABALIN
     Indication: COCCYDYNIA
     Dosage: 75 MG, 2X/DAY
     Dates: start: 201809
  2. LYRICA [Suspect]
     Active Substance: PREGABALIN
     Indication: CONGENITAL TERATOMA
  3. LYRICA [Suspect]
     Active Substance: PREGABALIN
     Indication: BACK PAIN
     Dosage: 75 MG, 3X/DAY
     Route: 048
     Dates: start: 2018

REACTIONS (2)
  - Tremor [Not Recovered/Not Resolved]
  - Reading disorder [Unknown]
